FAERS Safety Report 8927504 (Version 2)
Quarter: 2012Q4

REPORT INFORMATION
  Report Type: 
  Country: IT (occurrence: IT)
  Receive Date: 20121127
  Receipt Date: 20121225
  Transmission Date: 20130627
  Serious: Yes (Other)
  Sender: FDA-Public Use
  Company Number: IT-JNJFOC-20121111467

PATIENT
  Age: 49 Year
  Sex: Female

DRUGS (1)
  1. STELARA [Suspect]
     Indication: PSORIASIS
     Route: 058
     Dates: start: 20110111, end: 20120924

REACTIONS (2)
  - Glomerulonephritis [Unknown]
  - Proteinuria [Unknown]
